FAERS Safety Report 9808534 (Version 1)
Quarter: 2014Q1

REPORT INFORMATION
  Report Type: Spontaneous
  Country: FR (occurrence: FR)
  Receive Date: 20140110
  Receipt Date: 20140110
  Transmission Date: 20141002
  Serious: Yes (Hospitalization)
  Sender: FDA-Public Use
  Company Number: FR-SA-2014SA001895

PATIENT
  Sex: 0

DRUGS (15)
  1. RENVELA [Suspect]
     Indication: PRODUCT USED FOR UNKNOWN INDICATION
     Route: 048
     Dates: start: 20131128, end: 20131221
  2. BRISTOPEN [Suspect]
     Indication: STAPHYLOCOCCAL INFECTION
     Route: 042
     Dates: start: 20131128, end: 20131220
  3. RIFAMPICIN [Concomitant]
     Indication: INFECTION
     Route: 048
     Dates: start: 20131203, end: 20131210
  4. GENTAMICIN [Concomitant]
     Indication: INFECTION
     Route: 042
     Dates: start: 20131204, end: 20131210
  5. TAVANIC [Concomitant]
     Indication: INFECTION
     Dosage: 500 MG TABLET
     Route: 048
     Dates: start: 20131210, end: 20131212
  6. TRAMADOL [Concomitant]
     Route: 048
     Dates: start: 20131127, end: 20131206
  7. OXYCONTIN [Concomitant]
     Dosage: OXYCONTIN LP 5 MG
     Route: 048
     Dates: start: 20131210, end: 20131213
  8. OXYNORM [Concomitant]
     Route: 048
     Dates: start: 20131210, end: 20131212
  9. KARDEGIC [Concomitant]
     Route: 048
     Dates: start: 20131128, end: 20131212
  10. ACUPAN [Concomitant]
     Dates: start: 20131206, end: 20131209
  11. MOPRAL [Concomitant]
     Route: 048
     Dates: start: 20131128, end: 20131203
  12. METOPROLOL [Concomitant]
     Dosage: 50 MG TABLET
     Route: 048
     Dates: end: 20131220
  13. CALCIDIA [Concomitant]
     Dosage: 1.54G CALCIUM SACHET
     Route: 048
     Dates: end: 20131220
  14. KAYEXALATE [Concomitant]
     Route: 048
     Dates: end: 20131220
  15. ZOPICLONE [Concomitant]
     Dosage: STILNOX 10 MG TABLET
     Route: 048
     Dates: start: 20131206, end: 20131209

REACTIONS (1)
  - Bone marrow failure [Not Recovered/Not Resolved]
